FAERS Safety Report 21926479 (Version 2)
Quarter: 2023Q1

REPORT INFORMATION
  Report Type: Spontaneous
  Country: FR (occurrence: FR)
  Receive Date: 20230130
  Receipt Date: 20230206
  Transmission Date: 20230418
  Serious: Yes (Death)
  Sender: FDA-Public Use
  Company Number: FR-BAYER-2023P006077

PATIENT
  Age: 45 Year
  Sex: Male

DRUGS (11)
  1. XARELTO [Suspect]
     Active Substance: RIVAROXABAN
     Indication: Product used for unknown indication
     Dosage: UNK
     Route: 048
     Dates: start: 2019
  2. XARELTO [Suspect]
     Active Substance: RIVAROXABAN
     Dosage: 15 MG
     Route: 048
     Dates: start: 201912
  3. XARELTO [Suspect]
     Active Substance: RIVAROXABAN
     Dosage: UNK
     Route: 048
     Dates: start: 202206
  4. XARELTO [Suspect]
     Active Substance: RIVAROXABAN
     Dosage: XARELTO 1 MG/ML
     Route: 048
     Dates: start: 201912
  5. CHOLECALCIFEROL [Concomitant]
     Active Substance: CHOLECALCIFEROL
     Dosage: 100000 IU
  6. BACLOFEN [Concomitant]
     Active Substance: BACLOFEN
     Dosage: 10 MG
  7. LYRICA [Concomitant]
     Active Substance: PREGABALIN
     Dosage: 20 MICROGRAM PER MILLIGRAM
  8. DOLIPRANE [Concomitant]
     Active Substance: ACETAMINOPHEN
     Dosage: 1000 MG
  9. SCOPOLAMINE [Concomitant]
     Active Substance: SCOPOLAMINE
  10. RILUZOLE [Concomitant]
     Active Substance: RILUZOLE
     Dosage: 5 MICROGRAM PER MILLIGRAM
     Route: 048
  11. SEROPRAM (CITALOPRAM HYDROBROMIDE) [Concomitant]
     Active Substance: CITALOPRAM HYDROBROMIDE
     Route: 048

REACTIONS (3)
  - Neuropathic arthropathy [Fatal]
  - Dysphagia [Unknown]
  - Product administered to patient of inappropriate age [Unknown]

NARRATIVE: CASE EVENT DATE: 20220601
